FAERS Safety Report 8228431-2 (Version None)
Quarter: 2012Q1

REPORT INFORMATION
  Report Type: 
  Country: None (occurrence: None)
  Receive Date: 20120322
  Receipt Date: 20120314
  Transmission Date: 20120608
  Serious: Yes (Death, Hospitalization)
  Sender: FDA-Public Use
  Company Number: DE-UCBSA-000903

PATIENT
  Age: 74 Year
  Sex: Male
  Weight: 120 kg

DRUGS (14)
  1. STALEVO 100 [Concomitant]
     Indication: PARKINSON'S DISEASE
     Dosage: 100/25/200 MG
     Dates: start: 20080809, end: 20081126
  2. NEUPRO [Suspect]
     Route: 062
     Dates: start: 20061211, end: 20081111
  3. TORSEMIDE [Concomitant]
     Indication: HYPERTENSION
     Dates: start: 20040101, end: 20081111
  4. PK LEVO [Concomitant]
     Dosage: 100/25 MG 1/2 - 1/2 - 1/2
     Dates: start: 20060928, end: 20070907
  5. PK LEVO [Concomitant]
     Indication: PARKINSON'S DISEASE
     Dosage: 100/25 MG
     Dates: start: 20071112, end: 20080808
  6. RAMIPRIL [Concomitant]
     Indication: HYPERTENSION
     Dates: start: 20040101, end: 20081110
  7. AZILECT [Concomitant]
     Indication: PARKINSON'S DISEASE
     Dates: start: 20080611, end: 20081126
  8. NEUPRO [Suspect]
     Indication: PARKINSON'S DISEASE
     Route: 062
     Dates: start: 20081112, end: 20081126
  9. NEUPRO [Suspect]
     Dosage: 1/2 PATCH
     Route: 062
     Dates: start: 20061127, end: 20061210
  10. MARCUMAR [Concomitant]
     Indication: DEEP VEIN THROMBOSIS
     Dates: start: 20040101, end: 20081117
  11. PK LEVO [Concomitant]
     Dosage: 100/25 MG
     Dates: start: 20070908, end: 20081111
  12. HCT RATIO [Concomitant]
     Indication: OEDEMA
     Dates: start: 20040101, end: 20081126
  13. AMLODIPINE [Concomitant]
     Indication: HYPERTENSION
     Dates: start: 20040101, end: 20081126
  14. ERGOCALCIFEROL [Concomitant]
     Indication: OSTEOPOROSIS
     Dates: start: 20080311, end: 20081126

REACTIONS (1)
  - CARDIAC FAILURE [None]
